FAERS Safety Report 7541252-9 (Version None)
Quarter: 2011Q2

REPORT INFORMATION
  Report Type: 
  Country: None (occurrence: None)
  Receive Date: 20110610
  Receipt Date: 20110530
  Transmission Date: 20111010
  Serious: Yes (Other)
  Sender: FDA-Public Use
  Company Number: DE-GENENTECH-319771

PATIENT
  Age: 60 Year
  Sex: Male

DRUGS (9)
  1. RITUXIMAB [Suspect]
     Indication: MANTLE CELL LYMPHOMA
     Dosage: UNK
     Route: 065
  2. PREDNISOLONE [Concomitant]
     Indication: MANTLE CELL LYMPHOMA
     Dosage: UNK
  3. RITUXIMAB [Suspect]
     Dosage: UNK
     Route: 065
  4. CYCLOPHOSPHAMIDE [Concomitant]
     Indication: MANTLE CELL LYMPHOMA
     Dosage: UNK
  5. DOXORUBICIN HCL [Concomitant]
     Indication: MANTLE CELL LYMPHOMA
     Dosage: UNK
  6. VINCRISTINE [Concomitant]
     Indication: MANTLE CELL LYMPHOMA
     Dosage: UNK
  7. CYTARABINE [Concomitant]
     Indication: MANTLE CELL LYMPHOMA
     Dosage: UNK
  8. DEXAMETHASONE [Concomitant]
     Indication: MANTLE CELL LYMPHOMA
     Dosage: UNK
  9. CISPLATIN [Concomitant]
     Indication: MANTLE CELL LYMPHOMA
     Dosage: UNK

REACTIONS (1)
  - PROGRESSIVE MULTIFOCAL LEUKOENCEPHALOPATHY [None]
